FAERS Safety Report 8740787 (Version 2)
Quarter: 2012Q4

REPORT INFORMATION
  Report Type: 
  Country: US (occurrence: US)
  Receive Date: 20120823
  Receipt Date: 20121010
  Transmission Date: 20130627
  Serious: No
  Sender: FDA-Public Use
  Company Number: US-ASTRAZENECA-2012SE57563

PATIENT
  Age: 50 Year
  Sex: Female
  Weight: 65.8 kg

DRUGS (1)
  1. SYMBICORT [Suspect]
     Indication: ASTHMA
     Dosage: 160/4.5, TWO PUFFS BID
     Route: 055
     Dates: start: 2009

REACTIONS (3)
  - Chest discomfort [Not Recovered/Not Resolved]
  - Hypopnoea [Not Recovered/Not Resolved]
  - Circumstance or information capable of leading to medication error [Unknown]
